FAERS Safety Report 18526021 (Version 2)
Quarter: 2020Q4

REPORT INFORMATION
  Report Type: Spontaneous
  Country: US (occurrence: US)
  Receive Date: 20201120
  Receipt Date: 20201210
  Transmission Date: 20210114
  Serious: No
  Sender: FDA-Public Use
  Company Number: US-HORIZON-2020HZN01440

PATIENT
  Age: 67 Year
  Sex: Female

DRUGS (1)
  1. BUPHENYL [Suspect]
     Active Substance: SODIUM PHENYLBUTYRATE
     Indication: OVARIAN CANCER
     Dosage: 13G A DAY
     Dates: start: 2020

REACTIONS (1)
  - Off label use [Not Recovered/Not Resolved]
